FAERS Safety Report 9176076 (Version 1)
Quarter: 2013Q1

REPORT INFORMATION
  Report Type: Spontaneous
  Country: US (occurrence: US)
  Receive Date: 20130319
  Receipt Date: 20130319
  Transmission Date: 20140127
  Serious: Yes (Other)
  Sender: FDA-Public Use
  Company Number: US-RB-051044-13

PATIENT
  Age: 49 Year
  Sex: Female

DRUGS (3)
  1. MUCINEX FAST-MAX SEVERE CONGESTION AND COUGH [Suspect]
     Indication: PRODUCT USED FOR UNKNOWN INDICATION
     Dosage: TOOK 3 DOSES ON 02-MAR-2013. LAST USED AT 8:30 PM ON 02-MAR-2013.
     Route: 048
     Dates: start: 20130302
  2. MUCINEX FAST MAX ADULT CONGESTION + COUGH [Suspect]
  3. MUCINEX FAST MAX ADULT CONGESTION + COUGH [Suspect]

REACTIONS (4)
  - Blood urine present [Recovered/Resolved]
  - Bladder pain [Recovered/Resolved]
  - Dysuria [Recovered/Resolved]
  - Abdominal pain [Recovered/Resolved]
